FAERS Safety Report 17830643 (Version 1)
Quarter: 2020Q2

REPORT INFORMATION
  Report Type: Spontaneous
  Country: US (occurrence: US)
  Receive Date: 20200527
  Receipt Date: 20200527
  Transmission Date: 20200714
  Serious: Yes (Hospitalization)
  Sender: FDA-Public Use
  Company Number: US-MAYNE PHARMA-2020MYN000276

PATIENT

DRUGS (5)
  1. CLONIDINE HYDROCHLORIDE. [Suspect]
     Active Substance: CLONIDINE HYDROCHLORIDE
     Dosage: 0.4 MG, QD
     Route: 048
     Dates: start: 201905, end: 201906
  2. HEMP [Concomitant]
     Active Substance: HEMP
     Indication: PRODUCT USED FOR UNKNOWN INDICATION
     Dosage: UNK
     Route: 065
  3. CLONIDINE HYDROCHLORIDE. [Suspect]
     Active Substance: CLONIDINE HYDROCHLORIDE
     Indication: SLEEP DISORDER
     Dosage: 0.4 MG, QD
     Route: 048
     Dates: start: 201608, end: 2018
  4. VALIUM [Suspect]
     Active Substance: DIAZEPAM
     Indication: PRODUCT USED FOR UNKNOWN INDICATION
     Dosage: 4 DF, UNK
  5. CBD OIL [Concomitant]
     Active Substance: CANNABIDIOL\HERBALS
     Indication: PRODUCT USED FOR UNKNOWN INDICATION
     Dosage: UNK
     Route: 065

REACTIONS (16)
  - Withdrawal syndrome [Unknown]
  - Insomnia [Unknown]
  - Tooth loss [Unknown]
  - Restlessness [Unknown]
  - Dyspnoea [Not Recovered/Not Resolved]
  - Libido disorder [Unknown]
  - Eye disorder [Unknown]
  - Emotional distress [Unknown]
  - Quality of life decreased [Unknown]
  - Hypotonia [Not Recovered/Not Resolved]
  - Bruxism [Unknown]
  - Hospitalisation [Recovered/Resolved]
  - Muscle tightness [Recovered/Resolved]
  - Heart rate increased [Not Recovered/Not Resolved]
  - Gastrointestinal disorder [Unknown]
  - Hyperhidrosis [Recovered/Resolved]

NARRATIVE: CASE EVENT DATE: 2017
